FAERS Safety Report 4540933-9 (Version None)
Quarter: 2004Q4

REPORT INFORMATION
  Report Type: 
  Country: None (occurrence: None)
  Receive Date: 20041229
  Receipt Date: 20041221
  Transmission Date: 20050328
  Serious: Yes (Other)
  Sender: FDA-Public Use
  Company Number: GB-GLAXOSMITHKLINE-B0362498A

PATIENT
  Sex: Male

DRUGS (1)
  1. ZYBAN [Suspect]
     Dosage: 2TAB TWICE PER DAY
     Route: 048

REACTIONS (1)
  - PSYCHOTIC DISORDER [None]
